FAERS Safety Report 8821610 (Version 2)
Quarter: 2012Q4

REPORT INFORMATION
  Report Type: 
  Country: US (occurrence: US)
  Receive Date: 20121002
  Receipt Date: 20121015
  Transmission Date: 20130627
  Serious: Yes (Hospitalization)
  Sender: FDA-Public Use
  Company Number: US-ROCHE-1135079

PATIENT
  Sex: Male
  Weight: 123.94 kg

DRUGS (5)
  1. LUCENTIS [Suspect]
     Indication: DIABETIC RETINAL OEDEMA
     Dosage: 0.5 mg/0.05ml
     Route: 050
     Dates: start: 20111011
  2. CIPROFLOXACIN [Concomitant]
     Route: 050
  3. AZOPT [Concomitant]
  4. ALPHAGAN [Concomitant]
  5. XALATAN [Concomitant]

REACTIONS (3)
  - Heart rate irregular [Not Recovered/Not Resolved]
  - Dyspnoea [Not Recovered/Not Resolved]
  - Feeling abnormal [Unknown]
